FAERS Safety Report 8362494-9 (Version None)
Quarter: 2012Q2

REPORT INFORMATION
  Report Type: 
  Country: None (occurrence: None)
  Receive Date: 20120514
  Receipt Date: 20120424
  Transmission Date: 20120825
  Serious: Yes (Other)
  Sender: FDA-Public Use
  Company Number: 12000476

PATIENT
  Age: 53 Year
  Sex: Male

DRUGS (12)
  1. PACERONE [Suspect]
     Indication: ATRIAL FIBRILLATION
     Dosage: 400;200 MG, BID, ORAL 400 MG; 200 MG QD, ORAL
     Route: 048
     Dates: start: 20120101, end: 20120401
  2. PACERONE [Suspect]
     Indication: ATRIAL FIBRILLATION
     Dosage: 400;200 MG, BID, ORAL 400 MG; 200 MG QD, ORAL
     Route: 048
     Dates: start: 20120101, end: 20120101
  3. GLYBURIDE [Concomitant]
  4. DIGOXIN [Suspect]
  5. CALCIUM (CALCIUM CARBONATE) [Concomitant]
  6. COREG [Concomitant]
  7. CINNAMON (CINNAMOMUM VERUM) [Concomitant]
  8. MAGNESIUM [Concomitant]
  9. LIPITOR [Concomitant]
  10. ZINC (ZINC) [Concomitant]
  11. JANUMET [Suspect]
  12. LISINOPRIL [Concomitant]

REACTIONS (10)
  - HALO VISION [None]
  - BLINDNESS [None]
  - ABNORMAL DREAMS [None]
  - DRUG INTOLERANCE [None]
  - NAUSEA [None]
  - OPTIC NERVE INFARCTION [None]
  - SOMNOLENCE [None]
  - HEADACHE [None]
  - OPTIC NERVE INJURY [None]
  - OPTIC NEUROPATHY [None]
